FAERS Safety Report 16454707 (Version 8)
Quarter: 2021Q1

REPORT INFORMATION
  Report Type: Report from Study
  Country: US (occurrence: US)
  Receive Date: 20190619
  Receipt Date: 20210106
  Transmission Date: 20210419
  Serious: Yes (Hospitalization, Other)
  Sender: FDA-Public Use
  Company Number: PHEH2019US025339

PATIENT
  Sex: Male
  Weight: 67.12 kg

DRUGS (9)
  1. TREPROSTINIL. [Suspect]
     Active Substance: TREPROSTINIL
     Dosage: 23 NG/KG/MIN, CONTINUOUS
     Route: 042
  2. TREPROSTINIL. [Suspect]
     Active Substance: TREPROSTINIL
     Dosage: 22 NG/KG/MIN, CONTINUOUS
     Route: 042
  3. TREPROSTINIL. [Suspect]
     Active Substance: TREPROSTINIL
     Indication: PULMONARY ARTERIAL HYPERTENSION
     Dosage: 21 NG/KG/MIN, CONTINUOUS
     Route: 042
     Dates: start: 20190405
  4. REMODULIN [Concomitant]
     Active Substance: TREPROSTINIL
     Indication: PRODUCT USED FOR UNKNOWN INDICATION
     Dosage: 21 NG/KG/MIN
     Route: 065
  5. REMODULIN [Concomitant]
     Active Substance: TREPROSTINIL
     Dosage: 22 NG PER KG PER MIN
     Route: 065
  6. TREPROSTINIL. [Suspect]
     Active Substance: TREPROSTINIL
     Dosage: 22 NG/KG/MIN, CONTINUOUS
     Route: 042
  7. TREPROSTINIL. [Suspect]
     Active Substance: TREPROSTINIL
     Dosage: 22 NG/KG/MIN, CONTINUOUS
     Route: 042
  8. LETAIRIS [Concomitant]
     Active Substance: AMBRISENTAN
     Indication: PRODUCT USED FOR UNKNOWN INDICATION
     Dosage: UNK
     Route: 065
  9. REVATIO [Concomitant]
     Active Substance: SILDENAFIL CITRATE
     Indication: PRODUCT USED FOR UNKNOWN INDICATION
     Dosage: UNK
     Route: 065

REACTIONS (12)
  - Dyspnoea [Unknown]
  - Pneumonia [Unknown]
  - Infection [Unknown]
  - Hypoxia [Unknown]
  - Flatulence [Unknown]
  - Infusion site extravasation [Unknown]
  - Clostridium difficile infection [Unknown]
  - Pyrexia [Unknown]
  - Pain in extremity [Unknown]
  - Abdominal pain [Unknown]
  - Infusion site haemorrhage [Unknown]
  - Fatigue [Unknown]
